FAERS Safety Report 4441714-7 (Version None)
Quarter: 2004Q3

REPORT INFORMATION
  Report Type: 
  Country: None (occurrence: None)
  Receive Date: 20040903
  Receipt Date: 20040823
  Transmission Date: 20050211
  Serious: Yes (Hospitalization, Other)
  Sender: FDA-Public Use
  Company Number: 2004S1002504

PATIENT
  Age: 37 Year
  Sex: Male
  Weight: 95.2554 kg

DRUGS (9)
  1. ZONEGRAN [Suspect]
     Indication: CONVULSION
     Dosage: 200MG Q AM AND 300MG Q HS, ORAL
     Route: 048
     Dates: start: 20010101
  2. PHENYTEK [Suspect]
     Indication: CONVULSION
     Dosage: 300MG BID THEN 300MG QD AND 300 MG QOD, ORAL
     Route: 048
     Dates: start: 20020201
  3. PHENYTEK [Suspect]
     Indication: CONVULSION
     Dosage: 200MG Q AM AND 400MG QOD, ORAL
     Route: 048
     Dates: start: 20000201
  4. ZYPREXA [Suspect]
     Indication: ABNORMAL BEHAVIOUR
     Dosage: ORAL
     Route: 048
     Dates: start: 20040712
  5. ESCITALOPRAM OXALATE [Concomitant]
  6. LORAZEPAM (PRN) [Concomitant]
  7. DIAZEPAM (PM) [Concomitant]
  8. DONEPEZIL HCL [Concomitant]
  9. CLORAZEPATE DIPOTASSIUM [Concomitant]

REACTIONS (2)
  - ANTICONVULSANT DRUG LEVEL BELOW THERAPEUTIC [None]
  - GRAND MAL CONVULSION [None]
